FAERS Safety Report 9743152 (Version 2)
Quarter: 2015Q3

REPORT INFORMATION
  Report Type: Spontaneous
  Country: US (occurrence: US)
  Receive Date: 20131210
  Receipt Date: 20150804
  Transmission Date: 20151125
  Serious: No
  Sender: FDA-Public Use
  Company Number: US-GILEAD-2009-0024449

PATIENT
  Age: 78 Year
  Sex: Female

DRUGS (14)
  1. DEMECLOCYCLINE HCL [Concomitant]
     Active Substance: DEMECLOCYCLINE HYDROCHLORIDE
  2. LEXAPRO [Concomitant]
     Active Substance: ESCITALOPRAM OXALATE
  3. LASIX [Concomitant]
     Active Substance: FUROSEMIDE
  4. PREDNISONE. [Concomitant]
     Active Substance: PREDNISONE
  5. LETAIRIS [Suspect]
     Active Substance: AMBRISENTAN
     Indication: PULMONARY ARTERIAL HYPERTENSION
     Route: 048
     Dates: start: 20090604
  6. ASPIRIN. [Concomitant]
     Active Substance: ASPIRIN
  7. PROTONIX [Concomitant]
     Active Substance: PANTOPRAZOLE SODIUM
  8. LEVODOPA/CARBIDOPA [Concomitant]
  9. FLONASE [Concomitant]
     Active Substance: FLUTICASONE PROPIONATE
  10. PRIMIDONE. [Concomitant]
     Active Substance: PRIMIDONE
  11. ATIVAN [Concomitant]
     Active Substance: LORAZEPAM
  12. CLARITIN [Concomitant]
     Active Substance: LORATADINE
  13. PREVACID [Concomitant]
     Active Substance: LANSOPRAZOLE
  14. ACTONEL [Concomitant]
     Active Substance: RISEDRONATE SODIUM

REACTIONS (1)
  - Anaemia [Unknown]
